FAERS Safety Report 11520471 (Version 2)
Quarter: 2015Q4

REPORT INFORMATION
  Report Type: Spontaneous
  Country: DE (occurrence: DE)
  Receive Date: 20150918
  Receipt Date: 20151222
  Transmission Date: 20160304
  Serious: Yes (Death)
  Sender: FDA-Public Use
  Company Number: DE-UNITED THERAPEUTICS-UNT-2015-011387

PATIENT
  Sex: Female

DRUGS (1)
  1. REMODULIN [Suspect]
     Active Substance: TREPROSTINIL
     Indication: PRODUCT USED FOR UNKNOWN INDICATION
     Dosage: 0.99 (UNITS AND FREQUENCY NOT SPECIFIED)
     Route: 041
     Dates: start: 20131219

REACTIONS (2)
  - Disease progression [Fatal]
  - Product use issue [Unknown]

NARRATIVE: CASE EVENT DATE: 20131208
